FAERS Safety Report 9439874 (Version 1)
Quarter: 2013Q3

REPORT INFORMATION
  Report Type: Spontaneous
  Country: US (occurrence: US)
  Receive Date: 20130805
  Receipt Date: 20130805
  Transmission Date: 20140515
  Serious: Yes (Other)
  Sender: FDA-Public Use
  Company Number: US-BAYER-2013-092367

PATIENT
  Age: 28 Year
  Sex: Female

DRUGS (19)
  1. YASMIN [Suspect]
  2. DILAUDID [Concomitant]
     Dosage: 1 MG, UNK
  3. VICODIN ES [Concomitant]
  4. REGLAN [Concomitant]
     Dosage: 10 MG, UNK
  5. MACRODANTIN [Concomitant]
  6. PHENERGAN [Concomitant]
     Dosage: 25 MG, UNK
  7. REQUIP [Concomitant]
     Dosage: 2 MG, HS
  8. REQUIP [Concomitant]
     Dosage: 4 MG, HS
  9. ULTRAM [Concomitant]
  10. NITROFURANTOIN [Concomitant]
     Dosage: 1 CAPSULE,TWICE A DAY
  11. VISTARIL [Concomitant]
  12. MORPHINE [Concomitant]
  13. METRONIDAZOLE [Concomitant]
     Dosage: 500 MG, BID
  14. TRAZODONE [Concomitant]
     Dosage: 50 MG, HS
  15. METHADONE [Concomitant]
     Dosage: 10 MG, QID
  16. DOXYCYCLINE [Concomitant]
     Dosage: 100 MG, BID
  17. KETOCONAZOLE [Concomitant]
     Dosage: 2 %, BIW
  18. ALPRAZOLAM [Concomitant]
     Dosage: 1 MG, BID
  19. ALPRAZOLAM [Concomitant]
     Dosage: 0.5 MG, BID

REACTIONS (2)
  - Thrombophlebitis superficial [None]
  - Cholecystitis acute [None]
